FAERS Safety Report 17706275 (Version 2)
Quarter: 2020Q2

REPORT INFORMATION
  Report Type: Spontaneous
  Country: DE (occurrence: DE)
  Receive Date: 20200424
  Receipt Date: 20200526
  Transmission Date: 20200714
  Serious: Yes (Other)
  Sender: FDA-Public Use
  Company Number: DE-SHIRE-DE202014128

PATIENT

DRUGS (2)
  1. KIOVIG [Suspect]
     Active Substance: HUMAN IMMUNOGLOBULIN G
     Dosage: 10 GRAM, UNKNOWN
     Route: 042
     Dates: start: 20200323
  2. KIOVIG [Suspect]
     Active Substance: HUMAN IMMUNOGLOBULIN G
     Indication: PRODUCT USED FOR UNKNOWN INDICATION
     Dosage: 30 GRAM, UNKNOWN
     Route: 042
     Dates: start: 20200323

REACTIONS (2)
  - Nasopharyngitis [Recovered/Resolved]
  - Coronavirus test positive [Unknown]

NARRATIVE: CASE EVENT DATE: 20200331
